FAERS Safety Report 4605044-2 (Version None)
Quarter: 2005Q1

REPORT INFORMATION
  Report Type: 
  Country: None (occurrence: None)
  Receive Date: 20050217
  Receipt Date: 20041229
  Transmission Date: 20050727
  Serious: No
  Sender: FDA-Public Use
  Company Number: S04-USA-07987-01

PATIENT
  Age: 46 Year
  Sex: Female

DRUGS (3)
  1. NAMENDA [Suspect]
     Indication: FIBROMYALGIA
     Dosage: 5 MG QD PO
     Route: 048
     Dates: start: 20041215, end: 20041218
  2. NAMENDA [Suspect]
     Indication: FIBROMYALGIA
     Dosage: 5 MG QD PO
     Route: 048
     Dates: start: 20041226
  3. AMBIEN [Concomitant]

REACTIONS (2)
  - FLAT AFFECT [None]
  - IRRITABILITY [None]
